FAERS Safety Report 17077536 (Version 1)
Quarter: 2019Q4

REPORT INFORMATION
  Report Type: Spontaneous
  Country: US (occurrence: US)
  Receive Date: 20191126
  Receipt Date: 20191126
  Transmission Date: 20200122
  Serious: Yes (Hospitalization)
  Sender: FDA-Public Use
  Company Number: US-TEVA-2019-US-1142784

PATIENT
  Age: 49 Year
  Sex: Male

DRUGS (3)
  1. TRAMADOL. [Interacting]
     Active Substance: TRAMADOL
     Indication: OSTEOARTHRITIS
     Dosage: 50 MILLIGRAM DAILY;
     Route: 065
  2. VENLAFAXINE [Suspect]
     Active Substance: VENLAFAXINE HYDROCHLORIDE
     Indication: MAJOR DEPRESSION
     Dosage: 75 MILLIGRAM DAILY;
     Route: 065
  3. TRAMADOL. [Interacting]
     Active Substance: TRAMADOL
     Indication: ANALGESIC THERAPY
     Dosage: 150 MILLIGRAM DAILY;
     Route: 065

REACTIONS (4)
  - Drug interaction [Recovered/Resolved]
  - Intentional product misuse [Unknown]
  - Drug withdrawal syndrome [Recovered/Resolved]
  - Mania [Recovered/Resolved]
